FAERS Safety Report 7012926-3 (Version None)
Quarter: 2010Q3

REPORT INFORMATION
  Report Type: 
  Country: None (occurrence: None)
  Receive Date: 20100924
  Receipt Date: 20100913
  Transmission Date: 20110219
  Serious: Yes (Other)
  Sender: FDA-Public Use
  Company Number: JP-PFIZER INC-2010112316

PATIENT
  Age: 60 Year
  Sex: Female

DRUGS (6)
  1. LYRICA [Suspect]
     Indication: POST HERPETIC NEURALGIA
     Dosage: 150 MG/DAY
     Route: 048
     Dates: start: 20100624, end: 20100726
  2. LYRICA [Suspect]
     Dosage: 225 MG/DAY
     Route: 048
     Dates: start: 20100727
  3. METHYCOBAL [Concomitant]
     Indication: POST HERPETIC NEURALGIA
     Dosage: UNK
  4. DEPAS [Concomitant]
     Indication: POST HERPETIC NEURALGIA
     Dosage: UNK
  5. AMITRIPTYLINE HCL [Concomitant]
     Indication: POST HERPETIC NEURALGIA
  6. MYSLEE [Concomitant]
     Indication: POST HERPETIC NEURALGIA
     Dosage: UNK

REACTIONS (3)
  - ROAD TRAFFIC ACCIDENT [None]
  - SOMNOLENCE [None]
  - SPINAL OSTEOARTHRITIS [None]
